FAERS Safety Report 9767549 (Version 1)
Quarter: 2013Q4

REPORT INFORMATION
  Report Type: Spontaneous
  Country: US (occurrence: US)
  Receive Date: 20131217
  Receipt Date: 20131217
  Transmission Date: 20140711
  Serious: No
  Sender: FDA-Public Use
  Company Number: US-GILEAD-2009-0023625

PATIENT
  Sex: Male

DRUGS (14)
  1. VIREAD [Suspect]
     Indication: HEPATITIS B
  2. ALPRAZOLAM [Concomitant]
  3. EPOETIN [Concomitant]
  4. FUROSEMIDE [Concomitant]
  5. ATORVASTATIN [Concomitant]
  6. GABAPENTIN [Concomitant]
  7. OMEPRAZOLE [Concomitant]
  8. ATENOLOL [Concomitant]
  9. ALLOPURINOL [Concomitant]
  10. ASPIRIN [Concomitant]
  11. LISINOPRIL [Concomitant]
  12. FOLIC ACID [Concomitant]
  13. VITAMIN B6 [Concomitant]
  14. VITAMIN D [Concomitant]

REACTIONS (9)
  - Dyspnoea [Unknown]
  - Chest discomfort [Unknown]
  - Myalgia [Unknown]
  - Chills [Unknown]
  - Local swelling [Unknown]
  - Weight increased [Unknown]
  - Fatigue [Unknown]
  - Abdominal discomfort [Unknown]
  - Nausea [Unknown]
